FAERS Safety Report 24936542 (Version 3)
Quarter: 2025Q2

REPORT INFORMATION
  Report Type: Other
  Country: US (occurrence: US)
  Receive Date: 20250206
  Receipt Date: 20250429
  Transmission Date: 20250717
  Serious: No
  Sender: TRAVERE THERAPEUTICS
  Company Number: US-TRAVERE-2025TVT00125

PATIENT
  Age: 70 Year
  Sex: Male

DRUGS (1)
  1. FILSPARI [Suspect]
     Active Substance: SPARSENTAN
     Indication: IgA nephropathy
     Dosage: EXPIRY DATE: 31-MAR-2026
     Route: 048
     Dates: start: 20250107, end: 20250121

REACTIONS (5)
  - Hypersensitivity [None]
  - Dyspnoea [None]
  - Nasal congestion [None]
  - Headache [Unknown]
  - Abdominal pain upper [Unknown]
